FAERS Safety Report 25754650 (Version 1)
Quarter: 2025Q3

REPORT INFORMATION
  Report Type: Spontaneous
  Country: IN (occurrence: IN)
  Receive Date: 20250903
  Receipt Date: 20250903
  Transmission Date: 20251020
  Serious: No
  Sender: ALKEM
  Company Number: None

PATIENT
  Age: 45 Year
  Sex: Male
  Weight: 76 kg

DRUGS (35)
  1. GABAPENTIN [Suspect]
     Active Substance: GABAPENTIN
     Indication: Trigeminal neuropathy
     Dosage: 200 MILLIGRAM, BID
     Route: 048
     Dates: start: 202203
  2. GABAPENTIN [Suspect]
     Active Substance: GABAPENTIN
     Route: 048
  3. GABAPENTIN [Suspect]
     Active Substance: GABAPENTIN
     Dosage: 200 MILLIGRAM, BID (RECHALLENGE DOSE)
     Route: 048
     Dates: start: 202206
  4. GABAPENTIN [Suspect]
     Active Substance: GABAPENTIN
     Dosage: 200 MILLIGRAM, BID
     Route: 048
     Dates: start: 202207
  5. PREGABALIN [Suspect]
     Active Substance: PREGABALIN
     Indication: Trigeminal neuropathy
     Dosage: 75 MILLIGRAM, OD (TABLET)
     Route: 048
     Dates: start: 201907
  6. PREGABALIN [Suspect]
     Active Substance: PREGABALIN
     Dosage: 75 MILLIGRAM, BID (TABLET)
     Route: 048
     Dates: start: 201907
  7. DULOXETINE HYDROCHLORIDE [Suspect]
     Active Substance: DULOXETINE HYDROCHLORIDE
     Indication: Trigeminal neuropathy
     Dosage: 30 MILLIGRAM, BID (TABLET)
     Route: 048
     Dates: start: 201907
  8. DULOXETINE HYDROCHLORIDE [Suspect]
     Active Substance: DULOXETINE HYDROCHLORIDE
     Dosage: 30 MILLIGRAM, BID (TABLET)
     Route: 048
     Dates: start: 201912
  9. CARBAMAZEPINE [Suspect]
     Active Substance: CARBAMAZEPINE
     Indication: Trigeminal neuropathy
     Dosage: 200 MILLIGRAM, BID
     Route: 048
     Dates: start: 202203
  10. CARBAMAZEPINE [Suspect]
     Active Substance: CARBAMAZEPINE
     Dosage: 200 MILLIGRAM, TID
     Route: 048
     Dates: start: 2022
  11. CARBAMAZEPINE [Suspect]
     Active Substance: CARBAMAZEPINE
     Route: 048
  12. CARBAMAZEPINE [Suspect]
     Active Substance: CARBAMAZEPINE
     Route: 065
     Dates: start: 2016
  13. CARBAMAZEPINE [Suspect]
     Active Substance: CARBAMAZEPINE
     Dosage: 200 MILLIGRAM, BID
     Route: 048
     Dates: start: 201607
  14. CARBAMAZEPINE [Suspect]
     Active Substance: CARBAMAZEPINE
     Route: 065
     Dates: start: 201607
  15. CARBAMAZEPINE [Suspect]
     Active Substance: CARBAMAZEPINE
     Dosage: 600 MILLIGRAM, QD (GRADUALLY INCREASED OVER TWO MONTHS)
     Route: 048
     Dates: start: 202203
  16. CARBAMAZEPINE [Suspect]
     Active Substance: CARBAMAZEPINE
     Dosage: 600 MILLIGRAM, QD (GRADUALLY INCREASED OVER TWO MONTHS)
     Route: 048
     Dates: start: 202206
  17. CARBAMAZEPINE [Suspect]
     Active Substance: CARBAMAZEPINE
     Dosage: 600 MILLIGRAM, QD (RECHALLENGE DOSE)
     Route: 048
     Dates: start: 202207
  18. CARBAMAZEPINE [Suspect]
     Active Substance: CARBAMAZEPINE
     Route: 048
     Dates: start: 20220920
  19. CARBAMAZEPINE [Suspect]
     Active Substance: CARBAMAZEPINE
     Dosage: 300 MILLIGRAM (REDUCED DOSE)
     Route: 048
     Dates: start: 202210
  20. HERBALS\WITHANIA SOMNIFERA ROOT [Concomitant]
     Active Substance: HERBALS\WITHANIA SOMNIFERA ROOT
     Indication: Trigeminal neuropathy
     Route: 065
     Dates: start: 202206
  21. Ashwa guggal [Concomitant]
     Indication: Trigeminal neuropathy
     Dosage: 1 DOSAGE FORM, QD
     Route: 065
     Dates: start: 202207
  22. Ashwa guggal [Concomitant]
     Route: 065
  23. VITAMIN B COMPLEX [Concomitant]
     Active Substance: CYANOCOBALAMIN\DEXPANTHENOL\NIACINAMIDE\PYRIDOXINE HYDROCHLORIDE\RIBOFLAVIN 5^-PHOSPHATE SODIUM\THIA
     Indication: Trigeminal neuropathy
     Dosage: UNK, ONCE WEEKLY (THREE TIMES))
     Route: 065
     Dates: start: 201912
  24. Boswellia curcumin [Concomitant]
     Indication: Trigeminal neuropathy
     Route: 065
     Dates: start: 202206
  25. Brihat Vatachintamani Rasa [Concomitant]
     Indication: Trigeminal neuropathy
     Dosage: UNK, BID (1 TABLET)
     Route: 065
  26. DILANTIN [Concomitant]
     Active Substance: PHENYTOIN
     Indication: Trigeminal neuropathy
     Route: 042
     Dates: start: 20220920
  27. DILANTIN [Concomitant]
     Active Substance: PHENYTOIN
     Route: 042
     Dates: start: 20221111
  28. Kaishor guggulu [Concomitant]
     Indication: Trigeminal neuropathy
     Dosage: UNK, BID (2 TABLETS)
     Route: 065
  29. Kupi Ashwa [Concomitant]
     Indication: Trigeminal neuropathy
     Dosage: UNK, QD (1 TABLET)
     Route: 065
  30. Palsinuron [Concomitant]
     Indication: Trigeminal neuropathy
     Dosage: UNK, QD (1 CAPSULE)
     Route: 065
  31. Rasadi Yog [Concomitant]
     Indication: Trigeminal neuropathy
     Route: 065
  32. Susandhika [Concomitant]
     Indication: Trigeminal neuropathy
     Dosage: 2 DOSAGE FORM, QD
     Route: 065
     Dates: start: 202207
  33. Susandhika [Concomitant]
     Route: 065
  34. Vatosam [Concomitant]
     Indication: Trigeminal neuropathy
     Dosage: UNK, BID (1 TABLET)
     Route: 065
  35. Yograj guggulu [Concomitant]
     Indication: Trigeminal neuropathy
     Route: 065
     Dates: start: 202206

REACTIONS (6)
  - Vertigo [Unknown]
  - Somnolence [Unknown]
  - Constipation [Recovered/Resolved with Sequelae]
  - Headache [Unknown]
  - Sleep disorder [Recovered/Resolved with Sequelae]
  - Fatigue [Recovered/Resolved with Sequelae]
